FAERS Safety Report 5291896-2 (Version None)
Quarter: 2007Q2

REPORT INFORMATION
  Report Type: 
  Country: None (occurrence: None)
  Receive Date: 20070406
  Receipt Date: 20070406
  Transmission Date: 20071010
  Serious: Yes (Life-Threatening, Other)
  Sender: FDA-Public Use
  Company Number: None

PATIENT
  Age: 49 Year
  Sex: Female
  Weight: 117.9352 kg

DRUGS (2)
  1. NITROGLYCERIN [Suspect]
     Indication: ANGINA UNSTABLE
     Dosage: ONE PATCH Q72 HRS 061 ON SKIN
  2. PROVIGIL [Suspect]
     Indication: SOMNOLENCE
     Dosage: 200MG 1 TAB BID ORAL 047
     Route: 048

REACTIONS (7)
  - ANGINA UNSTABLE [None]
  - BLOOD PRESSURE INCREASED [None]
  - HEADACHE [None]
  - NAUSEA [None]
  - SICK SINUS SYNDROME [None]
  - TACHYCARDIA [None]
  - VOMITING PROJECTILE [None]
